FAERS Safety Report 17230138 (Version 1)
Quarter: 2020Q1

REPORT INFORMATION
  Report Type: Spontaneous
  Country: US (occurrence: US)
  Receive Date: 20200103
  Receipt Date: 20200103
  Transmission Date: 20200409
  Serious: No
  Sender: FDA-Public Use
  Company Number: US-BAYER-2020-001178

PATIENT
  Sex: Female

DRUGS (3)
  1. MULTIVIT [VITAMINS NOS] [Concomitant]
  2. PROMETRIUM [Concomitant]
     Active Substance: PROGESTERONE
  3. ESTRADIOL HEMIHYDRATE [Suspect]
     Active Substance: ESTRADIOL HEMIHYDRATE
     Dosage: UNK
     Route: 062
     Dates: start: 20190110

REACTIONS (4)
  - Application site pruritus [None]
  - Wrong technique in product usage process [None]
  - Breast pain [None]
  - Product adhesion issue [None]

NARRATIVE: CASE EVENT DATE: 201912
